FAERS Safety Report 8231776-3 (Version None)
Quarter: 2012Q1

REPORT INFORMATION
  Report Type: 
  Country: None (occurrence: None)
  Receive Date: 20120323
  Receipt Date: 20120321
  Transmission Date: 20120608
  Serious: Yes (Death)
  Sender: FDA-Public Use
  Company Number: US-ROCHE-1051074

PATIENT
  Sex: Female

DRUGS (1)
  1. RANIBIZUMAB [Suspect]
     Indication: MACULAR DEGENERATION
     Dosage: RECENT DOSE: 17 NOV 2011, FREQUENCY: PRN
     Route: 050
     Dates: start: 20100726

REACTIONS (1)
  - CEREBROVASCULAR ACCIDENT [None]
